FAERS Safety Report 13184975 (Version 3)
Quarter: 2017Q1

REPORT INFORMATION
  Report Type: Spontaneous
  Country: BG (occurrence: BG)
  Receive Date: 20170203
  Receipt Date: 20170208
  Transmission Date: 20170428
  Serious: Yes (Hospitalization)
  Sender: FDA-Public Use
  Company Number: BG-SA-2016SA067650

PATIENT
  Age: 0 Day
  Sex: Male
  Weight: 4.1 kg

DRUGS (4)
  1. LANTUS SOLOSTAR [Suspect]
     Active Substance: INSULIN GLARGINE
     Indication: MATERNAL EXPOSURE TIMING UNSPECIFIED
     Route: 064
  2. APIDRA SOLOSTAR [Suspect]
     Active Substance: INSULIN GLULISINE
     Indication: MATERNAL EXPOSURE TIMING UNSPECIFIED
     Route: 064
  3. SOLOSTAR [Concomitant]
     Active Substance: DEVICE
  4. SOLOSTAR [Concomitant]
     Active Substance: DEVICE
     Indication: TYPE 1 DIABETES MELLITUS

REACTIONS (9)
  - Hypoglycaemia [Recovered/Resolved]
  - Respiratory failure [Recovered/Resolved]
  - Cyanosis [Unknown]
  - Diabetic foetopathy [Unknown]
  - General physical condition abnormal [Recovered/Resolved]
  - Oedema [Unknown]
  - Heart rate increased [Unknown]
  - Breath sounds abnormal [Unknown]
  - Jaundice [Recovered/Resolved]

NARRATIVE: CASE EVENT DATE: 201610
